FAERS Safety Report 25811492 (Version 1)
Quarter: 2025Q3

REPORT INFORMATION
  Report Type: Spontaneous
  Country: US (occurrence: US)
  Receive Date: 20250917
  Receipt Date: 20250917
  Transmission Date: 20251020
  Serious: No
  Sender: Onesource Specialty Pharma
  Company Number: US-STRIDES ARCOLAB LIMITED-2025SP003448

PATIENT
  Sex: Male
  Weight: 90.703 kg

DRUGS (3)
  1. BENZONATATE [Suspect]
     Active Substance: BENZONATATE
     Indication: Rhinorrhoea
     Route: 048
  2. BENZONATATE [Suspect]
     Active Substance: BENZONATATE
     Indication: Influenza
  3. METFORMIN [Concomitant]
     Active Substance: METFORMIN HYDROCHLORIDE
     Indication: Type 2 diabetes mellitus
     Route: 048

REACTIONS (5)
  - Cough [Unknown]
  - Lacrimation increased [Unknown]
  - Oropharyngeal pain [Unknown]
  - Dyspnoea [Unknown]
  - Drug ineffective [Unknown]
